FAERS Safety Report 6925978-3 (Version None)
Quarter: 2010Q3

REPORT INFORMATION
  Report Type: 
  Country: None (occurrence: None)
  Receive Date: 20100816
  Receipt Date: 20091027
  Transmission Date: 20110219
  Serious: Yes (Hospitalization)
  Sender: FDA-Public Use
  Company Number: US-BRISTOL-MYERS SQUIBB COMPANY-14833875

PATIENT
  Age: 61 Year
  Sex: Female
  Weight: 47 kg

DRUGS (11)
  1. CETUXIMAB [Suspect]
     Indication: BLADDER TRANSITIONAL CELL CARCINOMA
     Dosage: CYCLE 5 DAY 1. RECENT: 08-OCT-2009.
  2. PACLITAXEL [Suspect]
     Indication: BLADDER TRANSITIONAL CELL CARCINOMA
     Dosage: CYCLE 5 DAY 1; LAST DOSE ON 08-OCT-2009
  3. LIPITOR [Concomitant]
  4. REMERON [Concomitant]
  5. VALIUM [Concomitant]
  6. NEXIUM [Concomitant]
  7. CYMBALTA [Concomitant]
  8. PLEXONAL [Concomitant]
     Dosage: 1-2TIMES/D
  9. OXYCONTIN [Concomitant]
  10. POTASSIUM [Concomitant]
  11. ZOFRAN [Concomitant]

REACTIONS (7)
  - DEHYDRATION [None]
  - DIARRHOEA [None]
  - DYSPNOEA [None]
  - HYPOKALAEMIA [None]
  - HYPOMAGNESAEMIA [None]
  - NAUSEA [None]
  - VOMITING [None]
